FAERS Safety Report 8212650-5 (Version None)
Quarter: 2012Q1

REPORT INFORMATION
  Report Type: 
  Country: None (occurrence: None)
  Receive Date: 20120315
  Receipt Date: 20120308
  Transmission Date: 20120608
  Serious: Yes (Hospitalization)
  Sender: FDA-Public Use
  Company Number: US-BAYER-2012-023922

PATIENT
  Age: 29 Year
  Sex: Female

DRUGS (3)
  1. SPIRONOLACTONE [Concomitant]
  2. PRILOSEC [Concomitant]
  3. YASMIN [Suspect]

REACTIONS (2)
  - PULMONARY EMBOLISM [None]
  - DEEP VEIN THROMBOSIS [None]
